FAERS Safety Report 25263175 (Version 1)
Quarter: 2025Q2

REPORT INFORMATION
  Report Type: Report from Study
  Country: US (occurrence: US)
  Receive Date: 20250502
  Receipt Date: 20250502
  Transmission Date: 20250717
  Serious: Yes (Death, Hospitalization)
  Sender: ALEXION PHARMACEUTICALS
  Company Number: US-AstraZeneca-CH-00860567A

PATIENT
  Age: 59 Year

DRUGS (1)
  1. OLAPARIB [Suspect]
     Active Substance: OLAPARIB
     Route: 065

REACTIONS (4)
  - Full blood count decreased [Unknown]
  - Drug intolerance [Unknown]
  - Hospitalisation [Not Recovered/Not Resolved]
  - Death [Fatal]
